FAERS Safety Report 4972568-8 (Version None)
Quarter: 2006Q1

REPORT INFORMATION
  Report Type: 
  Country: None (occurrence: None)
  Receive Date: 20060216
  Receipt Date: 20060116
  Transmission Date: 20060701
  Serious: No
  Sender: FDA-Public Use
  Company Number: TPA2006A00112

PATIENT
  Sex: Female

DRUGS (1)
  1. ROZEREM [Suspect]
     Indication: SOMNOLENCE
     Dosage: 8 MG, PER ORAL
     Route: 048

REACTIONS (4)
  - DRUG INEFFECTIVE [None]
  - INSOMNIA [None]
  - PARADOXICAL DRUG REACTION [None]
  - PSYCHOMOTOR HYPERACTIVITY [None]
